FAERS Safety Report 9447479 (Version 1)
Quarter: 2013Q3

REPORT INFORMATION
  Report Type: Spontaneous
  Country: US (occurrence: US)
  Receive Date: 20130808
  Receipt Date: 20130808
  Transmission Date: 20140515
  Serious: No
  Sender: FDA-Public Use
  Company Number: US-PFIZER INC-2013229467

PATIENT
  Sex: Female

DRUGS (5)
  1. LYRICA [Suspect]
     Indication: NEURALGIA
     Dosage: 75 MG, 1X/DAY
  2. FLEXERIL [Concomitant]
     Dosage: 10 MG, UNK
  3. PROMETHAZINE [Concomitant]
     Dosage: UNK
  4. ULTRAM [Concomitant]
     Dosage: UNK
  5. SYNTHROID [Concomitant]
     Dosage: UNK

REACTIONS (6)
  - Disturbance in attention [Unknown]
  - Euphoric mood [Unknown]
  - Dizziness postural [Unknown]
  - Somnolence [Unknown]
  - Feeling abnormal [Unknown]
  - Dizziness [Unknown]
